FAERS Safety Report 20113308 (Version 2)
Quarter: 2022Q1

REPORT INFORMATION
  Report Type: Report from Study
  Country: EG (occurrence: EG)
  Receive Date: 20211125
  Receipt Date: 20220225
  Transmission Date: 20220424
  Serious: Yes (Other)
  Sender: FDA-Public Use
  Company Number: EG-NOVARTISPH-NVSC2021EG039602

PATIENT
  Age: 23 Year
  Sex: Female

DRUGS (7)
  1. GILENYA [Suspect]
     Active Substance: FINGOLIMOD HYDROCHLORIDE
     Indication: Multiple sclerosis
     Dosage: 0.5 MG, QD
     Route: 048
     Dates: start: 202011
  2. GILENYA [Suspect]
     Active Substance: FINGOLIMOD HYDROCHLORIDE
     Dosage: 0.5 MG, QD
     Route: 048
     Dates: start: 202012
  3. GILENYA [Suspect]
     Active Substance: FINGOLIMOD HYDROCHLORIDE
     Dosage: 0.5 MG, QD
     Route: 048
  4. VITAMIN D NOS [Concomitant]
     Active Substance: VITAMIN D NOS
     Indication: Vitamin supplementation
     Dosage: 1 DF, QD
     Route: 048
     Dates: start: 2019
  5. CALCIUM [Concomitant]
     Active Substance: CALCIUM
     Indication: Vitamin supplementation
     Dosage: 3 DF, QD
     Route: 048
     Dates: start: 202102
  6. CYMBATEX [Concomitant]
     Indication: Feeling of relaxation
     Dosage: 1 DF, QD
     Route: 048
     Dates: end: 202110
  7. CYMBATEX [Concomitant]
     Dosage: 1 DF, QD
     Route: 065
     Dates: start: 20211112

REACTIONS (20)
  - Hypoaesthesia [Not Recovered/Not Resolved]
  - Multiple sclerosis [Not Recovered/Not Resolved]
  - Memory impairment [Not Recovered/Not Resolved]
  - Central nervous system lesion [Not Recovered/Not Resolved]
  - Full blood count abnormal [Unknown]
  - Urinary retention [Not Recovered/Not Resolved]
  - Haemoglobin decreased [Unknown]
  - Mean cell haemoglobin concentration decreased [Unknown]
  - Red cell distribution width increased [Unknown]
  - Vomiting [Recovering/Resolving]
  - Nervousness [Not Recovered/Not Resolved]
  - Visual impairment [Not Recovered/Not Resolved]
  - Hypotonia [Not Recovered/Not Resolved]
  - Eye irritation [Not Recovered/Not Resolved]
  - Nausea [Recovering/Resolving]
  - Nasopharyngitis [Recovered/Resolved]
  - Rhinorrhoea [Recovered/Resolved]
  - Oropharyngeal pain [Recovered/Resolved]
  - Abdominal pain [Recovered/Resolved]
  - Product availability issue [Not Recovered/Not Resolved]

NARRATIVE: CASE EVENT DATE: 20201101
